FAERS Safety Report 11990362 (Version 1)
Quarter: 2016Q1

REPORT INFORMATION
  Report Type: Other
  Country: GB (occurrence: GB)
  Receive Date: 20160202
  Receipt Date: 20160202
  Transmission Date: 20160526
  Serious: Yes (Other)
  Sender: FDA-Public Use
  Company Number: GB-MYLANLABS-2016M1003477

PATIENT

DRUGS (1)
  1. WARFARIN [Suspect]
     Active Substance: WARFARIN
     Dosage: UNK

REACTIONS (6)
  - Epigastric discomfort [Not Recovered/Not Resolved]
  - Blood urine present [Not Recovered/Not Resolved]
  - Skin ulcer [Not Recovered/Not Resolved]
  - Haemoptysis [Not Recovered/Not Resolved]
  - Haematochezia [Not Recovered/Not Resolved]
  - Irritable bowel syndrome [Not Recovered/Not Resolved]
